FAERS Safety Report 19145391 (Version 1)
Quarter: 2021Q2

REPORT INFORMATION
  Report Type: Spontaneous
  Country: US (occurrence: US)
  Receive Date: 20210415
  Receipt Date: 20210415
  Transmission Date: 20210717
  Serious: Yes (Hospitalization)
  Sender: FDA-Public Use
  Company Number: None

PATIENT
  Age: 61 Year
  Sex: Male
  Weight: 103.5 kg

DRUGS (14)
  1. LUNESTA [Concomitant]
     Active Substance: ESZOPICLONE
  2. PANTRORAZOLE SOD [Concomitant]
  3. METOPROLOL ER [Concomitant]
     Active Substance: METOPROLOL SUCCINATE
  4. ATORVASTATIN [Concomitant]
     Active Substance: ATORVASTATIN
  5. AMOLDIPINE BESYLATE [Concomitant]
  6. SILDENAFIL. [Suspect]
     Active Substance: SILDENAFIL
  7. ASPIRIN. [Concomitant]
     Active Substance: ASPIRIN
  8. XANAX [Concomitant]
     Active Substance: ALPRAZOLAM
  9. SECRET MIRACLE HONEY [DIETARY SUPPLEMENT] [Suspect]
     Active Substance: DIETARY SUPPLEMENT
     Indication: ERECTILE DYSFUNCTION
     Dosage: ?          QUANTITY:1 TEASPOON(S);?
     Route: 048
     Dates: start: 20210401, end: 20210402
  10. CANDESARTAN. [Concomitant]
     Active Substance: CANDESARTAN
  11. AMILORIDE [Concomitant]
     Active Substance: AMILORIDE
  12. TESTOSTRONE CYP [Concomitant]
  13. MAGNESIUM [Concomitant]
     Active Substance: MAGNESIUM
  14. FAMOTIDINE. [Concomitant]
     Active Substance: FAMOTIDINE

REACTIONS (4)
  - Recalled product [None]
  - Product formulation issue [None]
  - Product use complaint [None]
  - Atrial fibrillation [None]

NARRATIVE: CASE EVENT DATE: 20210403
